FAERS Safety Report 4709230-2 (Version None)
Quarter: 2005Q3

REPORT INFORMATION
  Report Type: 
  Country: None (occurrence: None)
  Receive Date: 20050705
  Receipt Date: 20050620
  Transmission Date: 20060218
  Serious: Yes (Death)
  Sender: FDA-Public Use
  Company Number: US015485

PATIENT
  Age: 33 Year
  Sex: Male

DRUGS (1)
  1. ACTIQ [Suspect]
     Dosage: 1600 MG ONCE, BUCCAL
     Route: 002
     Dates: start: 20040701, end: 20040701

REACTIONS (2)
  - MULTIPLE DRUG OVERDOSE ACCIDENTAL [None]
  - SELF-MEDICATION [None]
